FAERS Safety Report 12795646 (Version 1)
Quarter: 2016Q3

REPORT INFORMATION
  Report Type: Report from Study
  Country: US (occurrence: US)
  Receive Date: 20160929
  Receipt Date: 20160929
  Transmission Date: 20161109
  Serious: Yes (Other)
  Sender: FDA-Public Use
  Company Number: US-AMGEN-USASL2016132786

PATIENT

DRUGS (1)
  1. KYPROLIS [Suspect]
     Active Substance: CARFILZOMIB
     Indication: PRODUCT USED FOR UNKNOWN INDICATION
     Dosage: UNK
     Route: 065

REACTIONS (17)
  - Seborrhoeic keratosis [Unknown]
  - Decreased appetite [Unknown]
  - Contusion [Unknown]
  - Oral candidiasis [Unknown]
  - Renal disorder [Unknown]
  - Bone disorder [Unknown]
  - Ureteral disorder [Unknown]
  - Chondropathy [Unknown]
  - Musculoskeletal pain [Unknown]
  - Arthralgia [Unknown]
  - Epistaxis [Unknown]
  - Coagulopathy [Unknown]
  - Chronic kidney disease [Unknown]
  - Embolism venous [Unknown]
  - Vitamin D deficiency [Unknown]
  - Pancytopenia [Unknown]
  - Tachycardia [Unknown]

NARRATIVE: CASE EVENT DATE: 20141015
